FAERS Safety Report 6492880-3 (Version None)
Quarter: 2009Q4

REPORT INFORMATION
  Report Type: 
  Country: None (occurrence: None)
  Receive Date: 20091214
  Receipt Date: 20091130
  Transmission Date: 20100525
  Serious: Yes (Hospitalization)
  Sender: FDA-Public Use
  Company Number: PHHY2009JP51044

PATIENT
  Age: 53 Year
  Sex: Female

DRUGS (2)
  1. VOLTAREN [Suspect]
     Indication: ANALGESIC THERAPY
     Dosage: 75 MG DAILY
     Route: 048
  2. ADALIMUMAB (GENETICAL RECOMBINATION) [Concomitant]
     Indication: RHEUMATOID ARTHRITIS
     Dosage: UNK
     Route: 058
     Dates: start: 20090501

REACTIONS (7)
  - ABDOMINAL PAIN [None]
  - ANAEMIA [None]
  - GASTROINTESTINAL OEDEMA [None]
  - HAEMOGLOBIN DECREASED [None]
  - INTESTINAL MASS [None]
  - MELAENA [None]
  - SMALL INTESTINE ULCER [None]
